FAERS Safety Report 23329627 (Version 1)
Quarter: 2023Q4

REPORT INFORMATION
  Report Type: Other
  Country: JP (occurrence: JP)
  Receive Date: 20231222
  Receipt Date: 20231222
  Transmission Date: 20240110
  Serious: Yes (Hospitalization)
  Sender: FDA-Public Use
  Company Number: JP-CHUGAI-2023044641AA

PATIENT
  Age: 54 Year
  Sex: Male

DRUGS (1)
  1. TECENTRIQ [Suspect]
     Active Substance: ATEZOLIZUMAB
     Indication: Small cell lung cancer
     Dosage: UNK
     Route: 065

REACTIONS (4)
  - Graves^ disease [Unknown]
  - Secondary adrenocortical insufficiency [Recovering/Resolving]
  - Secondary hypogonadism [Unknown]
  - Hyperprolactinaemia [Unknown]
